FAERS Safety Report 7751875-X (Version None)
Quarter: 2011Q3

REPORT INFORMATION
  Report Type: 
  Country: None (occurrence: None)
  Receive Date: 20110914
  Receipt Date: 20110914
  Transmission Date: 20111222
  Serious: Yes (Death)
  Sender: FDA-Public Use
  Company Number: None

PATIENT
  Age: 32 Year
  Sex: Female
  Weight: 84.1 kg

DRUGS (1)
  1. MISOPROSTOL [Suspect]
     Indication: HYSTEROSCOPY
     Dosage: 400 MCG TABLET ONCE RECTALLY
     Route: 054

REACTIONS (2)
  - DYSPNOEA [None]
  - CARDIO-RESPIRATORY ARREST [None]
